FAERS Safety Report 18529328 (Version 1)
Quarter: 2020Q4

REPORT INFORMATION
  Report Type: Report from Study
  Country: CA (occurrence: CA)
  Receive Date: 20201120
  Receipt Date: 20201120
  Transmission Date: 20210114
  Serious: Yes (Other)
  Sender: FDA-Public Use
  Company Number: PHHY2016CA136148

PATIENT
  Age: 70 Year
  Sex: Male

DRUGS (6)
  1. CAPECITABINE. [Concomitant]
     Active Substance: CAPECITABINE
     Indication: PROPHYLAXIS
     Dosage: 500 MG, BID (14 DAYS ON AND 14 DAYS OFF)
     Route: 048
     Dates: start: 20190104
  2. BISOPROLOL [Concomitant]
     Active Substance: BISOPROLOL
     Indication: HYPERTENSION
     Dosage: 5 MG, QD
     Route: 048
  3. SANDOSTATIN LAR DEPOT [Suspect]
     Active Substance: OCTREOTIDE ACETATE
     Indication: CARCINOID SYNDROME
     Dosage: 20 MG, QMO (EVERY 4 WEEKS)
     Route: 030
     Dates: start: 20160216
  4. SANDOSTATIN LAR DEPOT [Suspect]
     Active Substance: OCTREOTIDE ACETATE
  5. SANDOSTATIN LAR DEPOT [Suspect]
     Active Substance: OCTREOTIDE ACETATE
     Indication: PANCREATIC NEUROENDOCRINE TUMOUR
     Dosage: 30 MG, QMO (EVERY 4 WEEKS)
     Route: 030
  6. TEMOZOLOMIDE. [Concomitant]
     Active Substance: TEMOZOLOMIDE
     Indication: PROPHYLAXIS
     Dosage: 140 MG, (LAST 5 DAYS DAILY EVERY 2 WEEKS) (14 DAYS ON AND 14 DAYS OFF)
     Route: 048
     Dates: start: 20190104

REACTIONS (7)
  - Malignant neoplasm progression [Unknown]
  - Heart rate irregular [Unknown]
  - Dysuria [Recovered/Resolved]
  - Hepatic neoplasm [Recovering/Resolving]
  - Musculoskeletal pain [Unknown]
  - Blood pressure systolic increased [Unknown]
  - Blood urine present [Unknown]

NARRATIVE: CASE EVENT DATE: 20160929
